FAERS Safety Report 22532311 (Version 1)
Quarter: 2023Q2

REPORT INFORMATION
  Report Type: Spontaneous
  Country: US (occurrence: US)
  Receive Date: 20230607
  Receipt Date: 20230607
  Transmission Date: 20230722
  Serious: No
  Sender: FDA-Public Use
  Company Number: US-PFIZER INC-202300211650

PATIENT
  Age: 58 Year
  Sex: Male

DRUGS (3)
  1. INLYTA [Suspect]
     Active Substance: AXITINIB
     Indication: Renal cell carcinoma
     Dosage: 5 MG, 2X/DAY
     Route: 048
     Dates: start: 20220616
  2. INLYTA [Suspect]
     Active Substance: AXITINIB
     Dosage: 1 MG TABLETS- 3 TABLETS TWICE DAILY
  3. KEYTRUDA [Suspect]
     Active Substance: PEMBROLIZUMAB
     Indication: Renal cell carcinoma
     Dosage: UNK
     Dates: start: 202304

REACTIONS (3)
  - Abdominal discomfort [Not Recovered/Not Resolved]
  - Feeding disorder [Not Recovered/Not Resolved]
  - Dysgeusia [Not Recovered/Not Resolved]
